FAERS Safety Report 15630256 (Version 1)
Quarter: 2018Q4

REPORT INFORMATION
  Report Type: Spontaneous
  Country: US (occurrence: US)
  Receive Date: 20181117
  Receipt Date: 20181117
  Transmission Date: 20190205
  Serious: Yes (Other)
  Sender: FDA-Public Use
  Company Number: None

PATIENT
  Age: 71 Year
  Sex: Female
  Weight: 86 kg

DRUGS (13)
  1. PROMETHAZINE [Suspect]
     Active Substance: PROMETHAZINE\PROMETHAZINE HYDROCHLORIDE
     Indication: ANXIETY
     Dosage: ?          OTHER FREQUENCY:X1;?
     Route: 030
  2. MONTELUKAST [Concomitant]
     Active Substance: MONTELUKAST SODIUM
  3. VANCOMYCIN [Concomitant]
     Active Substance: VANCOMYCIN
     Dates: start: 20181115
  4. HYDROCHLOROTHIAZIDE. [Concomitant]
     Active Substance: HYDROCHLOROTHIAZIDE
  5. METOPROLOL SUCCINATE. [Concomitant]
     Active Substance: METOPROLOL SUCCINATE
  6. CITALOPRAM [Concomitant]
     Active Substance: CITALOPRAM HYDROBROMIDE
  7. DOCUSATE [Concomitant]
     Active Substance: DOCUSATE
  8. CLINDAMYCIN. [Concomitant]
     Active Substance: CLINDAMYCIN
     Dates: start: 20181115
  9. LISINOPRIL. [Concomitant]
     Active Substance: LISINOPRIL
  10. ASPIRIN. [Concomitant]
     Active Substance: ASPIRIN
  11. GABAPENTIN. [Concomitant]
     Active Substance: GABAPENTIN
  12. MEPERIDINE [Suspect]
     Active Substance: MEPERIDINE
     Indication: PAIN
     Dosage: ?          OTHER FREQUENCY:X1;?
     Route: 030
  13. LEVOTHYROXINE. [Concomitant]
     Active Substance: LEVOTHYROXINE

REACTIONS (1)
  - Urticaria [None]

NARRATIVE: CASE EVENT DATE: 20181117
